FAERS Safety Report 20345924 (Version 1)
Quarter: 2022Q1

REPORT INFORMATION
  Report Type: Spontaneous
  Country: DE (occurrence: DE)
  Receive Date: 20220118
  Receipt Date: 20220118
  Transmission Date: 20220424
  Serious: Yes (Other)
  Sender: FDA-Public Use
  Company Number: DE-ROCHE-2395797

PATIENT
  Age: 50 Year
  Sex: Female

DRUGS (13)
  1. METHOTREXATE SODIUM [Suspect]
     Active Substance: METHOTREXATE SODIUM
     Indication: Diffuse large B-cell lymphoma
     Dosage: UNK , CYCLIC, 1ST LINE, R-CHOP 4 CYCLES
     Dates: start: 201811, end: 201901
  2. RITUXAN [Suspect]
     Active Substance: RITUXIMAB
     Indication: Diffuse large B-cell lymphoma
     Dosage: UNK UNK, CYCLIC, 1ST LINE, R-CHOP 4 CYCLES
     Route: 065
     Dates: start: 201811, end: 201901
  3. RITUXAN [Suspect]
     Active Substance: RITUXIMAB
     Dosage: UNK UNK, CYCLIC, 2ND LINE, LOCAL RADIOTHERAPY 40 GY
     Route: 065
     Dates: start: 201902, end: 201903
  4. RITUXAN [Suspect]
     Active Substance: RITUXIMAB
     Dosage: UNK UNK, CYCLIC, FURTHER LINE, R-DHAP 1 CYCLE
     Route: 065
     Dates: start: 201904, end: 201904
  5. RITUXAN [Suspect]
     Active Substance: RITUXIMAB
     Dosage: UNK UNK, CYCLIC, FURTHER LINE, R-ICE 1 CYCLE
     Route: 065
     Dates: start: 201905, end: 201905
  6. CYCLOPHOSPHAMIDE [Suspect]
     Active Substance: CYCLOPHOSPHAMIDE
     Indication: Diffuse large B-cell lymphoma
     Dosage: UNK, CYCLIC, 1ST LINE, R-CHOP 4 CYCLES
     Route: 065
     Dates: start: 201811, end: 201901
  7. DEXAMETHASONE [Suspect]
     Active Substance: DEXAMETHASONE
     Indication: Diffuse large B-cell lymphoma
     Dosage: UNK UNK, CYCLIC, 1ST LINE, R-CHOP 4 CYCLES
     Route: 065
     Dates: start: 201811, end: 201901
  8. AZATHIOPRINE [Suspect]
     Active Substance: AZATHIOPRINE
     Indication: Diffuse large B-cell lymphoma
     Dosage: UNK UNK, CYCLIC, 1ST LINE, R-CHOP 4 CYCLES
     Route: 065
     Dates: start: 201811, end: 201901
  9. POLIVY [Suspect]
     Active Substance: POLATUZUMAB VEDOTIN-PIIQ
     Indication: Diffuse large B-cell lymphoma
     Dosage: UNK UNK, CYCLIC, 1ST LINE, R-CHOP 4 CYCLES
     Route: 065
     Dates: start: 201811, end: 201901
  10. THALIDOMIDE [Suspect]
     Active Substance: THALIDOMIDE
     Indication: Diffuse large B-cell lymphoma
     Dosage: UNK UNK, CYCLIC, 1ST LINE, R-CHOP 4 CYCLES
     Route: 065
     Dates: start: 201811, end: 201901
  11. BENDAMUSTINE [Suspect]
     Active Substance: BENDAMUSTINE
     Indication: Diffuse large B-cell lymphoma
     Dosage: UNK UNK, CYCLIC, 1ST LINE, R-CHOP 4 CYCLES
     Route: 065
     Dates: start: 201811, end: 201901
  12. CISPLATIN\CYTARABINE\DEXAMETHASONE [Suspect]
     Active Substance: CISPLATIN\CYTARABINE\DEXAMETHASONE
     Indication: Diffuse large B-cell lymphoma
     Dosage: FURTHER LINE, R-DHAP 1 CYCLE
     Dates: start: 201904, end: 201904
  13. CYCLOPHOSPHAMIDE\DOXORUBICIN\PREDNISONE\VINCRISTINE [Suspect]
     Active Substance: CYCLOPHOSPHAMIDE\DOXORUBICIN\PREDNISONE\VINCRISTINE
     Indication: Diffuse large B-cell lymphoma
     Dosage: 1ST LINE, R-CHOP 4 CYCLES
     Dates: start: 201811, end: 201901

REACTIONS (4)
  - Haemoglobin decreased [Unknown]
  - Thalassaemia [Unknown]
  - Platelet count increased [Unknown]
  - Disease progression [Unknown]

NARRATIVE: CASE EVENT DATE: 20190606
